FAERS Safety Report 6870664-1 (Version None)
Quarter: 2010Q3

REPORT INFORMATION
  Report Type: 
  Country: None (occurrence: None)
  Receive Date: 20100723
  Receipt Date: 20100622
  Transmission Date: 20110219
  Serious: No
  Sender: FDA-Public Use
  Company Number: US-BAYER-201017362BCC

PATIENT
  Age: 75 Year
  Sex: Female
  Weight: 60 kg

DRUGS (5)
  1. ALEVE (CAPLET) [Suspect]
     Indication: PAIN
     Dosage: TOTAL DAILY DOSE: 220 MG  UNIT DOSE: 220 MG
     Route: 048
     Dates: start: 20100621
  2. LEVOTHYROXINE SODIUM [Concomitant]
     Route: 065
  3. MICARDIS [Concomitant]
     Route: 065
  4. BISOPROLOL FUMARATE [Concomitant]
     Route: 065
  5. GUANFACINE HYDROCHLORIDE [Concomitant]
     Route: 065

REACTIONS (2)
  - BLOOD PRESSURE SYSTOLIC INCREASED [None]
  - FATIGUE [None]
